FAERS Safety Report 5072526-1 (Version None)
Quarter: 2006Q3

REPORT INFORMATION
  Report Type: 
  Country: None (occurrence: None)
  Receive Date: 20060807
  Receipt Date: 20060803
  Transmission Date: 20061208
  Serious: Yes (Death, Hospitalization)
  Sender: FDA-Public Use
  Company Number: US-BRISTOL-MYERS SQUIBB COMPANY-13465067

PATIENT
  Age: 72 Year
  Sex: Male
  Weight: 73 kg

DRUGS (5)
  1. ERBITUX [Suspect]
     Indication: NON-SMALL CELL LUNG CANCER
     Route: 041
     Dates: start: 20060713, end: 20060713
  2. PEMETREXED DISODIUM [Suspect]
     Indication: NON-SMALL CELL LUNG CANCER
     Route: 041
     Dates: start: 20060629, end: 20060629
  3. FOLIC ACID [Concomitant]
     Dates: start: 20060503, end: 20060719
  4. TOPROL-XL [Concomitant]
     Dates: start: 20020101
  5. VITAMIN B-12 [Concomitant]
     Dates: start: 20060502, end: 20060629

REACTIONS (2)
  - DIZZINESS [None]
  - MALIGNANT NEOPLASM PROGRESSION [None]
